FAERS Safety Report 5344288-1 (Version None)
Quarter: 2007Q2

REPORT INFORMATION
  Report Type: 
  Country: None (occurrence: None)
  Receive Date: 20070604
  Receipt Date: 20070522
  Transmission Date: 20071010
  Serious: Yes (Hospitalization)
  Sender: FDA-Public Use
  Company Number: US-ELI_LILLY_AND_COMPANY-US200705004957

PATIENT
  Age: 34 Year
  Sex: Female

DRUGS (5)
  1. CYMBALTA [Suspect]
     Indication: DEPRESSION
     Dates: start: 20060328
  2. LAMICTAL [Concomitant]
     Indication: BIPOLAR I DISORDER
     Dosage: 200 MG, UNK
     Dates: start: 20060815
  3. METFORMIN HCL [Concomitant]
  4. ADVAIR DISKUS 100/50 [Concomitant]
  5. FLONASE [Concomitant]

REACTIONS (2)
  - FURUNCLE [None]
  - NECROTISING FASCIITIS [None]
